FAERS Safety Report 23879864 (Version 1)
Quarter: 2024Q2

REPORT INFORMATION
  Report Type: Spontaneous
  Country: US (occurrence: US)
  Receive Date: 20240521
  Receipt Date: 20240521
  Transmission Date: 20240715
  Serious: No
  Sender: FDA-Public Use
  Company Number: US-PFIZER INC-202400134238

PATIENT
  Age: 25 Year
  Sex: Female
  Weight: 97.98 kg

DRUGS (3)
  1. NURTEC ODT [Suspect]
     Active Substance: RIMEGEPANT SULFATE
     Indication: Migraine
     Dosage: 75 MG, DAILY
     Dates: start: 20240509, end: 20240510
  2. AMITRIPTYLINE [Concomitant]
     Active Substance: AMITRIPTYLINE
     Indication: Migraine
     Dosage: 25 MG, DAILY
     Route: 048
     Dates: start: 202402
  3. HYDROXYZINE [Concomitant]
     Active Substance: HYDROXYZINE HYDROCHLORIDE
     Indication: Anxiety
     Dosage: 10 MG, 2X/DAY
     Route: 048
     Dates: start: 202402

REACTIONS (2)
  - Depression [Not Recovered/Not Resolved]
  - Off label use [Unknown]

NARRATIVE: CASE EVENT DATE: 20240509
